FAERS Safety Report 8195507-8 (Version None)
Quarter: 2012Q1

REPORT INFORMATION
  Report Type: 
  Country: None (occurrence: None)
  Receive Date: 20120308
  Receipt Date: 20120306
  Transmission Date: 20120608
  Serious: Yes (Other)
  Sender: FDA-Public Use
  Company Number: PHEH2012US005164

PATIENT
  Sex: Male

DRUGS (5)
  1. DIOVAN [Suspect]
     Dosage: 80 MG, QD
  2. SAXAGLIPTIN [Concomitant]
  3. PRAVASTATIN [Concomitant]
  4. GLYBURIDE [Concomitant]
  5. FAMOTIDINE [Concomitant]

REACTIONS (1)
  - DIABETES MELLITUS [None]
